FAERS Safety Report 16350360 (Version 1)
Quarter: 2019Q2

REPORT INFORMATION
  Report Type: Spontaneous
  Country: US (occurrence: US)
  Receive Date: 20190524
  Receipt Date: 20190524
  Transmission Date: 20190711
  Serious: No
  Sender: FDA-Public Use
  Company Number: US-SHIRE-US201916880

PATIENT
  Age: 66 Year
  Sex: Female

DRUGS (1)
  1. GATTEX [Suspect]
     Active Substance: TEDUGLUTIDE\WATER
     Indication: PRODUCT USED FOR UNKNOWN INDICATION
     Dosage: 0.3 MILLILITER, 1X/DAY:QD
     Route: 065

REACTIONS (5)
  - Unevaluable event [Unknown]
  - Flatulence [Unknown]
  - Abdominal pain upper [Unknown]
  - Headache [Unknown]
  - Abdominal distension [Unknown]
